FAERS Safety Report 13758015 (Version 1)
Quarter: 2017Q3

REPORT INFORMATION
  Report Type: Report from Study
  Country: US (occurrence: US)
  Receive Date: 20170717
  Receipt Date: 20170717
  Transmission Date: 20171127
  Serious: Yes (Hospitalization, Other)
  Sender: FDA-Public Use
  Company Number: US-ROCHE-1960658

PATIENT
  Age: 58 Year
  Sex: Female
  Weight: 50.1 kg

DRUGS (5)
  1. BENICAR [Concomitant]
     Active Substance: OLMESARTAN MEDOXOMIL
  2. NEURONTIN [Concomitant]
     Active Substance: GABAPENTIN
  3. BEVACIZUMAB. [Suspect]
     Active Substance: BEVACIZUMAB
     Indication: METASTASES TO MENINGES
     Route: 042
     Dates: start: 20100702, end: 20101110
  4. CAPECITABINE. [Suspect]
     Active Substance: CAPECITABINE
     Indication: METASTASES TO MENINGES
     Route: 065
  5. HUMULIN NOS [Concomitant]
     Active Substance: INSULIN HUMAN

REACTIONS (6)
  - Abdominal pain [Unknown]
  - Hyperglycaemia [Not Recovered/Not Resolved]
  - Lymphopenia [Not Recovered/Not Resolved]
  - Hypophosphataemia [Not Recovered/Not Resolved]
  - Diarrhoea [Recovered/Resolved]
  - Hyperuricaemia [Unknown]

NARRATIVE: CASE EVENT DATE: 20100912
